FAERS Safety Report 22031639 (Version 3)
Quarter: 2023Q1

REPORT INFORMATION
  Report Type: Spontaneous
  Country: BG (occurrence: None)
  Receive Date: 20230224
  Receipt Date: 20230321
  Transmission Date: 20230417
  Serious: Yes (Hospitalization)
  Sender: FDA-Public Use
  Company Number: BG-ROCHE-3292042

PATIENT
  Age: 74 Year
  Sex: Female
  Weight: 55 kg

DRUGS (4)
  1. TOCILIZUMAB [Suspect]
     Active Substance: TOCILIZUMAB
     Indication: Rheumatoid arthritis
     Route: 058
     Dates: start: 2017, end: 202301
  2. ESSOBEL [Concomitant]
     Indication: Anxiety disorder
  3. MEXIA [Concomitant]
     Indication: Dementia Alzheimer^s type
  4. PREGABIN [Concomitant]
     Indication: Generalised anxiety disorder

REACTIONS (2)
  - Gastric cancer [Unknown]
  - Benign hepatic neoplasm [Not Recovered/Not Resolved]

NARRATIVE: CASE EVENT DATE: 20230101
